FAERS Safety Report 4531971-0 (Version None)
Quarter: 2004Q4

REPORT INFORMATION
  Report Type: 
  Country: None (occurrence: None)
  Receive Date: 20041216
  Receipt Date: 20041212
  Transmission Date: 20050328
  Serious: Yes (Death, Life-Threatening, Hospitalization)
  Sender: FDA-Public Use
  Company Number: PERC20040074

PATIENT
  Age: 30 Year
  Sex: Female

DRUGS (3)
  1. PERCOCET [Suspect]
     Dosage: PO
     Route: 048
     Dates: start: 20030101, end: 20030101
  2. COCAINE [Suspect]
     Dosage: PO
     Route: 048
     Dates: start: 20030101, end: 20030101
  3. ETHANOL [Suspect]
     Dates: start: 20030101, end: 20030101

REACTIONS (4)
  - BRAIN OEDEMA [None]
  - COAGULOPATHY [None]
  - DRUG ABUSER [None]
  - HEPATIC FAILURE [None]
